FAERS Safety Report 8986753 (Version 1)
Quarter: 2012Q4

REPORT INFORMATION
  Report Type: 
  Country: TR (occurrence: TR)
  Receive Date: 20121226
  Receipt Date: 20121226
  Transmission Date: 20130627
  Serious: Yes (Other)
  Sender: FDA-Public Use
  Company Number: TR-MYLANLABS-2012S1025739

PATIENT
  Age: 2 Year
  Sex: Male

DRUGS (5)
  1. CYTARABINE [Suspect]
     Indication: ACUTE MYELOID LEUKAEMIA
     Dosage: 3 g/m2
     Route: 042
  2. CYTARABINE [Suspect]
     Indication: ACUTE MYELOID LEUKAEMIA
     Dosage: 26mg
     Route: 037
  3. ETOPOSIDE [Suspect]
     Indication: ACUTE MYELOID LEUKAEMIA
     Dosage: 125 mg/m2
     Route: 065
  4. CEFEPIME [Suspect]
     Indication: FEBRILE NEUTROPENIA
     Dosage: 150 mg/kg/day
     Route: 042
  5. AMIKACIN [Concomitant]
     Indication: FEBRILE NEUTROPENIA
     Dosage: 15 mg/kg/day
     Route: 065

REACTIONS (2)
  - Status epilepticus [Recovered/Resolved]
  - Febrile neutropenia [Unknown]
